FAERS Safety Report 17140116 (Version 2)
Quarter: 2019Q4

REPORT INFORMATION
  Report Type: Spontaneous
  Country: US (occurrence: US)
  Receive Date: 20191211
  Receipt Date: 20191226
  Transmission Date: 20200122
  Serious: No
  Sender: FDA-Public Use
  Company Number: US-AMGEN-USASP2019203814

PATIENT
  Age: 71 Year
  Sex: Male

DRUGS (9)
  1. FLONASE [Concomitant]
     Active Substance: FLUTICASONE PROPIONATE
     Dosage: 50 MICROGRAM, (50 MCG/ACTUATION)(1 SPRAY BY NASAL ROUTE AS NEEDED)
     Route: 045
  2. AMOXIL [AMOXICILLIN] [Concomitant]
     Dosage: 500 MILLIGRAM (TAKE 4 TABLETS BY MOUTH ONCE. 1 HOUR PRIOR RO DENTAL PROCEDURE)
     Route: 048
  3. VALSARTAN. [Concomitant]
     Active Substance: VALSARTAN
  4. REPATHA [Suspect]
     Active Substance: EVOLOCUMAB
     Indication: BLOOD CHOLESTEROL ABNORMAL
     Dosage: 140 MILLIGRAM PER MILLILITRE, Q2WK
     Route: 058
     Dates: start: 201908
  5. ZETIA [Concomitant]
     Active Substance: EZETIMIBE
     Dosage: UNK
     Dates: start: 2019
  6. COZAAR [Concomitant]
     Active Substance: LOSARTAN POTASSIUM
     Dosage: 25 MILLIGRAM (2 OR 3 TIMES EACH WEEK, BUT NOT DAILY)
     Route: 048
  7. ALBUTEROL [SALBUTAMOL] [Concomitant]
     Active Substance: ALBUTEROL
     Dosage: 90 MICROGRAM ()INHALE 2 PUFFS INTO THE LUNGS EVERY 6( SIX) HOURS AS
     Route: 045
  8. EZETIMIBE. [Concomitant]
     Active Substance: EZETIMIBE
     Dosage: OR 3 TIMES EACH WEEK,
  9. ASPIRIN 81 [Concomitant]
     Active Substance: ASPIRIN
     Dosage: 1 DOSAGE FORM, QD
     Route: 048

REACTIONS (2)
  - Tachyphrenia [Unknown]
  - Sleep disorder due to general medical condition, insomnia type [Unknown]

NARRATIVE: CASE EVENT DATE: 2019
